FAERS Safety Report 7264457-3 (Version None)
Quarter: 2011Q1

REPORT INFORMATION
  Report Type: 
  Country: None (occurrence: None)
  Receive Date: 20110131
  Receipt Date: 20110119
  Transmission Date: 20110831
  Serious: Yes (Death)
  Sender: FDA-Public Use
  Company Number: GB-JNJFOC-20110105375

PATIENT

DRUGS (2)
  1. ACETAMINOPHEN [Suspect]
     Indication: PRODUCT USED FOR UNKNOWN INDICATION
  2. ACETAMINOPHEN [Suspect]

REACTIONS (3)
  - HEPATOTOXICITY [None]
  - ENCEPHALOPATHY [None]
  - ACCIDENTAL OVERDOSE [None]
